FAERS Safety Report 6841911-7 (Version None)
Quarter: 2010Q3

REPORT INFORMATION
  Report Type: 
  Country: None (occurrence: None)
  Receive Date: 20100709
  Receipt Date: 20100624
  Transmission Date: 20110219
  Serious: Yes (Other)
  Sender: FDA-Public Use
  Company Number: DSJ-2010-10681

PATIENT
  Age: 71 Year
  Sex: Male

DRUGS (6)
  1. AMLODIPINE BESYLATE AND OLMESARTAN MEDOXOMIL [Suspect]
     Indication: HYPERTENSION
     Dosage: 40/10 MG (1 IN 1 D), PER ORAL
     Route: 048
     Dates: start: 20100325
  2. METOPROLOL TARTRATE AND HYDROCHLOROTHIAZIDE [Suspect]
  3. CHLORTHALIDONE [Concomitant]
  4. RILMENIDINE [Suspect]
  5. ROSUVASTATIN [Concomitant]
  6. VILDAGLIPTIN/METFORMIN [Concomitant]

REACTIONS (7)
  - ARTERIOSCLEROSIS [None]
  - ASTHENIA [None]
  - HYPERGLYCAEMIA [None]
  - HYPERHIDROSIS [None]
  - HYPOGLYCAEMIA [None]
  - OEDEMA PERIPHERAL [None]
  - TREMOR [None]
